FAERS Safety Report 17565049 (Version 1)
Quarter: 2020Q1

REPORT INFORMATION
  Report Type: Report from Study
  Country: CA (occurrence: CA)
  Receive Date: 20200320
  Receipt Date: 20200320
  Transmission Date: 20200409
  Serious: Yes (Other)
  Sender: FDA-Public Use
  Company Number: CA-ASTRAZENECA-2019SF81196

PATIENT
  Age: 17887 Day
  Sex: Female

DRUGS (9)
  1. ALVESCO [Concomitant]
     Active Substance: CICLESONIDE
  2. ZENHALE [Concomitant]
     Active Substance: FORMOTEROL FUMARATE\MOMETASONE FUROATE
  3. BENADRYL [Concomitant]
     Active Substance: DIPHENHYDRAMINE HYDROCHLORIDE
  4. FASENRA [Suspect]
     Active Substance: BENRALIZUMAB
     Indication: ASTHMA
     Dosage: 30.0MG UNKNOWN
     Route: 058
     Dates: start: 20191113
  5. MONTELUAKST [Concomitant]
  6. CORTISONE [Concomitant]
     Active Substance: CORTISONE
     Dosage: AS REQUIRED
  7. PREDNISONE. [Concomitant]
     Active Substance: PREDNISONE
  8. VENTOLIN [Concomitant]
     Active Substance: ALBUTEROL SULFATE
  9. XOLAIR [Concomitant]
     Active Substance: OMALIZUMAB

REACTIONS (7)
  - Rash macular [Recovered/Resolved]
  - Hypersensitivity [Recovered/Resolved]
  - Pneumonia [Recovered/Resolved]
  - Anxiety [Unknown]
  - Bronchitis [Recovered/Resolved]
  - Pruritus [Unknown]
  - Blood pressure increased [Not Recovered/Not Resolved]

NARRATIVE: CASE EVENT DATE: 20191115
